FAERS Safety Report 5718265-2 (Version None)
Quarter: 2008Q2

REPORT INFORMATION
  Report Type: 
  Country: None (occurrence: None)
  Receive Date: 20080425
  Receipt Date: 20080103
  Transmission Date: 20081010
  Serious: No
  Sender: FDA-Public Use
  Company Number: US-ASTRAZENECA-2008UW00262

PATIENT
  Sex: Female

DRUGS (1)
  1. ZOMIG-ZMT [Suspect]
     Indication: CLUSTER HEADACHE
     Route: 048

REACTIONS (1)
  - TOOTHACHE [None]
